FAERS Safety Report 5427057-3 (Version None)
Quarter: 2007Q3

REPORT INFORMATION
  Report Type: 
  Country: None (occurrence: None)
  Receive Date: 20070824
  Receipt Date: 20070824
  Transmission Date: 20080115
  Serious: Yes (Hospitalization)
  Sender: FDA-Public Use
  Company Number: None

PATIENT
  Sex: Male

DRUGS (14)
  1. NELARABINE [Suspect]
     Indication: T-CELL TYPE ACUTE LEUKAEMIA
     Dosage: 3360MG IV X 3 DOSES
     Route: 042
     Dates: start: 20070516
  2. NELARABINE [Suspect]
     Indication: T-CELL TYPE ACUTE LEUKAEMIA
     Dosage: 3360MG IV X 3 DOSES
     Route: 042
     Dates: start: 20070518
  3. NELARABINE [Suspect]
     Indication: T-CELL TYPE ACUTE LEUKAEMIA
     Dosage: 3360MG IV X 3 DOSES
     Route: 042
     Dates: start: 20070520
  4. VANCOMYCIN [Concomitant]
  5. CEFEPIME [Concomitant]
  6. DILTIAZEM [Concomitant]
  7. DOCUSATE [Concomitant]
  8. LANSOPRAZOLE [Concomitant]
  9. DIGOXIN [Concomitant]
  10. MEFOCLOPRAMIDE [Concomitant]
  11. HYDROXYZINE [Concomitant]
  12. DOXEPIN HCL [Concomitant]
  13. ALLOPURINOL [Concomitant]
  14. FLUCONAZOLE [Concomitant]

REACTIONS (1)
  - BLOOD CREATININE INCREASED [None]
